FAERS Safety Report 7608710-X (Version None)
Quarter: 2011Q3

REPORT INFORMATION
  Report Type: 
  Country: None (occurrence: None)
  Receive Date: 20110714
  Receipt Date: 20110704
  Transmission Date: 20111222
  Serious: Yes (Other)
  Sender: FDA-Public Use
  Company Number: HR-ALLERGAN-1109030US

PATIENT
  Age: 65 Year
  Sex: Female

DRUGS (2)
  1. TRUSOPT [Suspect]
     Indication: GLAUCOMA
     Dosage: UNK
     Dates: start: 20110603, end: 20110606
  2. ALPHAGAN [Suspect]
     Indication: GLAUCOMA
     Dosage: UNK
     Dates: start: 20110603, end: 20110606

REACTIONS (1)
  - EPISTAXIS [None]
